FAERS Safety Report 8358237 (Version 6)
Quarter: 2013Q1

REPORT INFORMATION
  Report Type: Spontaneous
  Country: US (occurrence: None)
  Receive Date: 20120111
  Receipt Date: 20130322
  Transmission Date: 20140127
  Serious: Yes (Other)
  Sender: FDA-Public Use
  Company Number: 2012030706

PATIENT
  Age: 60 Year
  Sex: Female
  Weight: 88.91 kg

DRUGS (15)
  1. HIZENTRA [Suspect]
     Indication: IMMUNODEFICIENCY COMMON VARIABLE
     Dosage: 4 SITES OVER 1 HOUR AND 17 MINUTES.
     Route: 058
     Dates: start: 20111021
  2. SINGULAIR [Concomitant]
  3. AMBIEN [Concomitant]
  4. TRIAMTERENE HCTZ (DYAZIDE) [Concomitant]
  5. OMEPRAZOLE [Concomitant]
  6. FENOFIBRATE [Concomitant]
  7. VESICARE [Concomitant]
  8. RANITIDINE HYDROCHLORIDE [Concomitant]
  9. POLYETHYLENE GLUCOL (MACROGOL) [Concomitant]
  10. METOCLOPRAMIDE [Concomitant]
  11. PROMETHAZINE (GALENIC/CODEINE/PROMETHAZINE) [Concomitant]
  12. OXYGEN (OXYGEN) [Concomitant]
  13. VITAMIN D [Concomitant]
  14. MUCINEX [Concomitant]
  15. JANUMET (DRUG USED IN DIABETES) [Concomitant]

REACTIONS (6)
  - Pyrexia [None]
  - Fatigue [None]
  - Headache [None]
  - Nausea [None]
  - Respiratory tract infection [None]
  - Sinusitis [None]
